FAERS Safety Report 6299309-9 (Version None)
Quarter: 2009Q3

REPORT INFORMATION
  Report Type: 
  Country: None (occurrence: None)
  Receive Date: 20090806
  Receipt Date: 20090729
  Transmission Date: 20100115
  Serious: Yes (Life-Threatening, Hospitalization)
  Sender: FDA-Public Use
  Company Number: FR-PFIZER INC-2009247067

PATIENT
  Age: 70 Year

DRUGS (11)
  1. AMLOR [Suspect]
     Indication: HYPERTENSION
     Dosage: 1 DF, UNK
     Route: 048
     Dates: start: 20081204, end: 20081208
  2. ARACYTINE [Suspect]
     Indication: ACUTE MYELOID LEUKAEMIA
     Dosage: 200 MG, 1X/DAY
     Route: 042
     Dates: start: 20081204, end: 20081210
  3. TAHOR [Suspect]
     Indication: DYSLIPIDAEMIA
     Dosage: 1 DF, 1X/DAY
     Route: 048
     Dates: end: 20081210
  4. ATARAX [Suspect]
     Dosage: UNK
     Route: 048
     Dates: start: 20081205, end: 20081210
  5. BELUSTINE [Suspect]
     Indication: ACUTE MYELOID LEUKAEMIA
     Dosage: 400 MG, 1X/DAY
     Dates: start: 20081204, end: 20081204
  6. CIFLOX [Suspect]
     Dosage: UNK
     Route: 048
     Dates: start: 20081204, end: 20081207
  7. ONDANSETRON HCL [Suspect]
     Dosage: 8MG/4ML
     Route: 042
     Dates: start: 20081204
  8. DEXAMETHASONE [Concomitant]
     Indication: ACUTE MYELOID LEUKAEMIA
     Dosage: 8 MG, UNK
     Route: 048
     Dates: start: 20081205, end: 20081208
  9. LASIX [Concomitant]
     Dosage: UNK
     Route: 048
     Dates: start: 20081204, end: 20081207
  10. TAZOCILLINE [Concomitant]
     Dosage: 2 DF, 1X/DAY
     Route: 042
     Dates: start: 20081204, end: 20081210
  11. PANTOPRAZOLE SODIUM [Concomitant]

REACTIONS (1)
  - MYOCARDIAL INFARCTION [None]
